FAERS Safety Report 5549691-2 (Version None)
Quarter: 2007Q4

REPORT INFORMATION
  Report Type: 
  Country: None (occurrence: None)
  Receive Date: 20071212
  Receipt Date: 20071207
  Transmission Date: 20080405
  Serious: Yes (Life-Threatening, Hospitalization, Other)
  Sender: FDA-Public Use
  Company Number: PHEH2007US14475

PATIENT
  Age: 37 Year
  Sex: Male
  Weight: 90.249 kg

DRUGS (8)
  1. DIOVAN [Suspect]
     Indication: MALIGNANT HYPERTENSION
     Dosage: 320 MG, UNK
  2. METOPROLOL TARTRATE [Suspect]
     Dosage: 100 MG, UNK
  3. NORVASC [Suspect]
     Dosage: 10 MG, UNK
  4. TEKTURNA [Concomitant]
     Indication: MALIGNANT HYPERTENSION
     Dosage: 150 MG, QD
     Route: 048
     Dates: start: 20071029, end: 20071102
  5. AMBIEN [Concomitant]
     Dosage: 10MG, UNK
  6. KLONOPIN [Concomitant]
     Dosage: 1 MG, BID
  7. PRILOSEC [Concomitant]
     Dosage: 20MG, UNK
  8. K-DUR 10 [Concomitant]
     Dosage: UNK, BID

REACTIONS (19)
  - AORTIC DISORDER [None]
  - AORTIC STENOSIS [None]
  - ASTHENIA [None]
  - BLOOD PRESSURE SYSTOLIC INCREASED [None]
  - CONVULSION [None]
  - DIASTOLIC DYSFUNCTION [None]
  - DIZZINESS [None]
  - DYSARTHRIA [None]
  - ECHOCARDIOGRAM ABNORMAL [None]
  - FATIGUE [None]
  - HEADACHE [None]
  - HYPOKALAEMIA [None]
  - HYPOTENSION [None]
  - LOSS OF CONSCIOUSNESS [None]
  - PHOTOPHOBIA [None]
  - SINUS BRADYCARDIA [None]
  - SYNCOPE [None]
  - ULTRASOUND KIDNEY ABNORMAL [None]
  - URINARY INCONTINENCE [None]
